FAERS Safety Report 20763113 (Version 1)
Quarter: 2022Q2

REPORT INFORMATION
  Report Type: Spontaneous
  Country: US (occurrence: None)
  Receive Date: 20220428
  Receipt Date: 20220428
  Transmission Date: 20220721
  Serious: No
  Sender: FDA-Public Use
  Company Number: US-Ultragenyx Pharmaceutical Inc.-US-UGNX-21-00501

PATIENT
  Age: 3 Year
  Sex: Female
  Weight: 17.4 kg

DRUGS (1)
  1. DOJOLVI [Suspect]
     Active Substance: TRIHEPTANOIN
     Indication: Mitochondrial enzyme deficiency
     Dosage: 22ML/DAY, PROVIDED IN 5 DOSES, VIA G-TUBE WITH GOAL DOSE OF 45ML PER DAY, AT 9ML, FIVE TIMES DAILY
     Dates: start: 20211112

REACTIONS (3)
  - Gastrointestinal disorder [Recovering/Resolving]
  - Off label use [Unknown]
  - Diarrhoea [Unknown]

NARRATIVE: CASE EVENT DATE: 20211112
